FAERS Safety Report 16568552 (Version 12)
Quarter: 2021Q2

REPORT INFORMATION
  Report Type: Report from Study
  Country: FR (occurrence: FR)
  Receive Date: 20190712
  Receipt Date: 20210625
  Transmission Date: 20210716
  Serious: Yes (Death, Other)
  Sender: FDA-Public Use
  Company Number: PHHY2019FR059001

PATIENT
  Sex: Male
  Weight: 63 kg

DRUGS (3)
  1. VOTRIENT [Suspect]
     Active Substance: PAZOPANIB HYDROCHLORIDE
     Dosage: 400 MG, QD
     Route: 048
     Dates: start: 201808, end: 20190403
  2. VOTRIENT [Suspect]
     Active Substance: PAZOPANIB HYDROCHLORIDE
     Indication: RENAL CANCER METASTATIC
     Dosage: 400 MG, QD
     Route: 048
     Dates: start: 20180725
  3. VOTRIENT [Suspect]
     Active Substance: PAZOPANIB HYDROCHLORIDE
     Dosage: 800 MG, QD
     Route: 048

REACTIONS (23)
  - Acute respiratory failure [Unknown]
  - Hepatic function abnormal [Not Recovered/Not Resolved]
  - Nausea [Recovered/Resolved]
  - Back pain [Recovered/Resolved]
  - Dyspnoea exertional [Recovered/Resolved]
  - Cholestasis [Not Recovered/Not Resolved]
  - Jaundice [Not Recovered/Not Resolved]
  - Malignant neoplasm progression [Fatal]
  - Metastases to pancreas [Fatal]
  - Inferior vena cava stenosis [Unknown]
  - Oedema peripheral [Not Recovered/Not Resolved]
  - Inflammation [Recovered/Resolved]
  - Hypoalbuminaemia [Unknown]
  - Dyspnoea exertional [Recovered/Resolved]
  - Xerosis [Recovered/Resolved]
  - Dyspepsia [Recovering/Resolving]
  - Rhinorrhoea [Recovered/Resolved]
  - Metastases to liver [Fatal]
  - Lymphopenia [Recovered/Resolved]
  - Renal cancer metastatic [Fatal]
  - Asthenia [Recovered/Resolved]
  - Erythrosis [Recovering/Resolving]
  - Nausea [Recovered/Resolved]

NARRATIVE: CASE EVENT DATE: 201807
